FAERS Safety Report 17903031 (Version 4)
Quarter: 2020Q4

REPORT INFORMATION
  Report Type: Spontaneous
  Country: US (occurrence: US)
  Receive Date: 20200616
  Receipt Date: 20201019
  Transmission Date: 20210113
  Serious: No
  Sender: FDA-Public Use
  Company Number: US-LEXICON PHARMACEUTICALS, INC-20-1606-00441

PATIENT
  Age: 75 Year
  Sex: Female

DRUGS (5)
  1. XERMELO [Suspect]
     Active Substance: TELOTRISTAT ETHYL
     Dosage: DOESN^T TAKE MEDICATION LIKE SHE SHOULD
  2. XERMELO [Suspect]
     Active Substance: TELOTRISTAT ETHYL
     Dosage: MORE OFTEN IS TAKING IT ONLY ONCE A DAY
  3. AMOXICILLIN. [Suspect]
     Active Substance: AMOXICILLIN
  4. SANDOSTATIN [Concomitant]
     Active Substance: OCTREOTIDE ACETATE
     Route: 065
  5. XERMELO [Suspect]
     Active Substance: TELOTRISTAT ETHYL
     Indication: CARCINOID SYNDROME
     Dates: start: 20200420

REACTIONS (4)
  - Ankle fracture [Unknown]
  - Diarrhoea [Not Recovered/Not Resolved]
  - Product dose omission issue [Not Recovered/Not Resolved]
  - Memory impairment [Unknown]
